FAERS Safety Report 21851112 (Version 1)
Quarter: 2023Q1

REPORT INFORMATION
  Report Type: Spontaneous
  Country: NL (occurrence: NL)
  Receive Date: 20230112
  Receipt Date: 20230112
  Transmission Date: 20230417
  Serious: Yes (Life-Threatening, Hospitalization)
  Sender: FDA-Public Use
  Company Number: None

PATIENT
  Sex: Male
  Weight: 77 kg

DRUGS (1)
  1. METHOTREXATE [Suspect]
     Active Substance: METHOTREXATE
     Indication: Oligoarthritis
     Dosage: BRAND NAME NOT SPECIFIED
     Route: 065
     Dates: start: 20220201, end: 20220701

REACTIONS (1)
  - Hypercalcaemia [Recovered/Resolved]
